FAERS Safety Report 6344462-1 (Version None)
Quarter: 2009Q3

REPORT INFORMATION
  Report Type: 
  Country: None (occurrence: None)
  Receive Date: 20090908
  Receipt Date: 20090831
  Transmission Date: 20100115
  Serious: Yes (Other)
  Sender: FDA-Public Use
  Company Number: US-ABBOTT-09P-163-0594527-00

PATIENT
  Age: 49 Year
  Sex: Male

DRUGS (4)
  1. HUMIRA [Suspect]
     Indication: CROHN'S DISEASE
     Dates: start: 20080101, end: 20090630
  2. HUMIRA [Suspect]
     Route: 058
     Dates: start: 20090630
  3. PENTASA [Concomitant]
     Indication: DRUG USE FOR UNKNOWN INDICATION
  4. ENTICORT [Concomitant]
     Indication: DRUG USE FOR UNKNOWN INDICATION

REACTIONS (5)
  - CROHN'S DISEASE [None]
  - GASTRITIS [None]
  - GASTROINTESTINAL DISORDER [None]
  - ILEAL STENOSIS [None]
  - SMALL INTESTINE ULCER [None]
